FAERS Safety Report 5271839-8 (Version None)
Quarter: 2007Q1

REPORT INFORMATION
  Report Type: 
  Country: None (occurrence: None)
  Receive Date: 20070321
  Receipt Date: 20070312
  Transmission Date: 20070707
  Serious: Yes (Other)
  Sender: FDA-Public Use
  Company Number: JP-PFIZER INC-2007019380

PATIENT
  Sex: Female

DRUGS (3)
  1. NORVASC [Suspect]
     Route: 048
  2. SELBEX [Interacting]
     Route: 048
  3. LOXONIN [Concomitant]
     Route: 048

REACTIONS (3)
  - BLISTER [None]
  - DRUG INTERACTION [None]
  - ECZEMA [None]
